FAERS Safety Report 7110438-X (Version None)
Quarter: 2010Q4

REPORT INFORMATION
  Report Type: 
  Country: None (occurrence: None)
  Receive Date: 20101118
  Receipt Date: 20101109
  Transmission Date: 20110411
  Serious: Yes (Other)
  Sender: FDA-Public Use
  Company Number: CA-JNJFOC-20101104121

PATIENT
  Sex: Female
  Weight: 100.2 kg

DRUGS (14)
  1. REMICADE [Suspect]
     Indication: PSORIATIC ARTHROPATHY
     Route: 042
  2. SALAZOPYRIN EN [Concomitant]
  3. GLYBURIDE [Concomitant]
  4. CO METFORMIN [Concomitant]
  5. NOVORAPID PENFIL [Concomitant]
     Dosage: BEFORE MEALS
  6. LEVEMIR [Concomitant]
  7. LIPITOR [Concomitant]
  8. VASOTEC [Concomitant]
  9. ATACAND [Concomitant]
  10. APO TRIAZIDE [Concomitant]
  11. APO-HYDRALAZINE [Concomitant]
  12. METOPROLOL [Concomitant]
  13. NIFEDIPINE [Concomitant]
  14. OMEPRAZOLE [Concomitant]

REACTIONS (3)
  - CERVICITIS [None]
  - NEOPLASM MALIGNANT [None]
  - VAGINAL INFECTION [None]
